FAERS Safety Report 8556645-0 (Version None)
Quarter: 2012Q3

REPORT INFORMATION
  Report Type: 
  Country: None (occurrence: None)
  Receive Date: 20120801
  Receipt Date: 20120725
  Transmission Date: 20120928
  Serious: Yes (Death, Hospitalization)
  Sender: FDA-Public Use
  Company Number: ES-BRISTOL-MYERS SQUIBB COMPANY-16490120

PATIENT
  Age: 79 Year
  Sex: Male

DRUGS (9)
  1. BISOPROLOL FUMARATE [Concomitant]
  2. ZOLPIDEM TARTRATE [Concomitant]
  3. ACETAMINOPHEN [Concomitant]
  4. IPILIMUMAB [Suspect]
     Indication: MALIGNANT MELANOMA
     Route: 042
     Dates: start: 20120110, end: 20120314
  5. ENOXAPARIN SODIUM [Concomitant]
  6. OMEPRAZOLE [Concomitant]
  7. CLORAZEPATE DIPOTASSIUM [Concomitant]
  8. ASTUDAL [Concomitant]
  9. DIGOXIN [Concomitant]

REACTIONS (4)
  - PULMONARY ALVEOLAR HAEMORRHAGE [None]
  - VOMITING [None]
  - DEATH [None]
  - DIARRHOEA [None]
